FAERS Safety Report 19269239 (Version 2)
Quarter: 2021Q2

REPORT INFORMATION
  Report Type: Report from Study
  Country: HK (occurrence: HK)
  Receive Date: 20210517
  Receipt Date: 20210520
  Transmission Date: 20210717
  Serious: Yes (Death)
  Sender: FDA-Public Use
  Company Number: HK-TAIHO ONCOLOGY  INC-JPTT210188

PATIENT
  Age: 61 Year
  Sex: Female
  Weight: 67.9 kg

DRUGS (16)
  1. MAXOLON [Concomitant]
     Active Substance: METOCLOPRAMIDE HYDROCHLORIDE
     Indication: NAUSEA
     Route: 048
     Dates: start: 20210504, end: 20210511
  2. COLACE [Concomitant]
     Active Substance: DOCUSATE SODIUM
     Indication: FAECES SOFT
     Route: 048
     Dates: start: 20210504, end: 20210511
  3. GASTEEL [Concomitant]
     Indication: GASTROOESOPHAGEAL REFLUX DISEASE
     Route: 048
     Dates: start: 20210504, end: 20210511
  4. PANADOL [Concomitant]
     Active Substance: ACETAMINOPHEN
     Indication: PAIN
     Route: 048
     Dates: start: 20210504, end: 20210511
  5. ALDACTONE [Concomitant]
     Active Substance: SPIRONOLACTONE
     Indication: FLUID REPLACEMENT
     Route: 048
     Dates: start: 20210504, end: 20210511
  6. GRAVOL [Concomitant]
     Active Substance: DIMENHYDRINATE
     Indication: VOMITING
     Route: 048
     Dates: start: 20210504, end: 20210511
  7. PREGABALIN. [Concomitant]
     Active Substance: PREGABALIN
     Indication: PAIN
     Route: 048
     Dates: start: 20210504, end: 20210511
  8. KENALOG IN ORABASE [Concomitant]
     Active Substance: TRIAMCINOLONE ACETONIDE
     Indication: PRURITUS
     Route: 049
     Dates: start: 20210504, end: 20210511
  9. LASIX [Concomitant]
     Active Substance: FUROSEMIDE
     Indication: OEDEMA
     Route: 048
     Dates: start: 20210504, end: 20210511
  10. LACTOBACILLUS RHAMNOSUS GG [Concomitant]
     Indication: FAECES SOFT
     Route: 048
     Dates: start: 20210504, end: 20210511
  11. PANTOLOC [Concomitant]
     Active Substance: PANTOPRAZOLE SODIUM
     Indication: GASTROOESOPHAGEAL REFLUX DISEASE
     Route: 048
     Dates: start: 20210504, end: 20210511
  12. SENNA [Concomitant]
     Active Substance: SENNA LEAF\SENNOSIDES\SENNOSIDES A AND B
     Indication: CONSTIPATION
     Route: 048
     Dates: start: 20210504, end: 20210511
  13. HOLOPON [Concomitant]
     Indication: VOMITING
     Route: 048
     Dates: start: 20210504, end: 20210511
  14. LONSURF [Suspect]
     Active Substance: TIPIRACIL HYDROCHLORIDE\TRIFLURIDINE
     Indication: PANCREATIC CARCINOMA
     Dosage: Q4W?C1
     Route: 048
     Dates: start: 20210505, end: 20210510
  15. TRIACT [Concomitant]
     Indication: PREMEDICATION
     Dosage: DETAILS NOT PROVIDED
     Route: 048
     Dates: start: 20210504, end: 20210511
  16. IMODIUM [Concomitant]
     Active Substance: LOPERAMIDE HYDROCHLORIDE
     Indication: DIARRHOEA
     Route: 048
     Dates: start: 20210504, end: 20210511

REACTIONS (1)
  - Death [Fatal]

NARRATIVE: CASE EVENT DATE: 20210512
